FAERS Safety Report 4638577-3 (Version None)
Quarter: 2005Q2

REPORT INFORMATION
  Report Type: 
  Country: None (occurrence: None)
  Receive Date: 20050414
  Receipt Date: 20050414
  Transmission Date: 20051028
  Serious: No
  Sender: FDA-Public Use
  Company Number: None

PATIENT
  Age: 47 Year
  Sex: Male
  Weight: 76.2043 kg

DRUGS (1)
  1. FENTANYL PATCH [Suspect]
     Indication: BACK PAIN
     Dosage: Q 3 DAYS  OPIOIDS FOR YEARS DURAGESIC SINCE 11/04

REACTIONS (2)
  - DRUG WITHDRAWAL SYNDROME [None]
  - PHARMACEUTICAL PRODUCT COMPLAINT [None]
